FAERS Safety Report 9461876 (Version 1)
Quarter: 2013Q3

REPORT INFORMATION
  Report Type: Spontaneous
  Country: CA (occurrence: CA)
  Receive Date: 20130816
  Receipt Date: 20130816
  Transmission Date: 20140515
  Serious: Yes (Other)
  Sender: FDA-Public Use
  Company Number: PHHY2013CA086365

PATIENT
  Age: 15 Year
  Sex: Female

DRUGS (3)
  1. EXJADE [Suspect]
     Indication: THALASSAEMIA BETA
     Dosage: UNK UKN, DAILY
     Route: 048
     Dates: start: 200901, end: 20130807
  2. FOLIC ACID [Concomitant]
  3. VITAMIIN C [Concomitant]
     Dosage: UNK UKN, UNK

REACTIONS (7)
  - Hypoaesthesia oral [Recovered/Resolved]
  - Rash pruritic [Recovered/Resolved]
  - Lip swelling [Recovered/Resolved]
  - Oedema peripheral [Recovered/Resolved]
  - Drug hypersensitivity [Recovered/Resolved]
  - Drug intolerance [Unknown]
  - Rash [Unknown]
